FAERS Safety Report 4890611-1 (Version None)
Quarter: 2006Q1

REPORT INFORMATION
  Report Type: 
  Country: None (occurrence: None)
  Receive Date: 20060123
  Receipt Date: 20060105
  Transmission Date: 20060701
  Serious: Yes (Hospitalization, Other)
  Sender: FDA-Public Use
  Company Number: US200601000915

PATIENT
  Age: 47 Year
  Sex: Male

DRUGS (6)
  1. INSULIN [Suspect]
     Indication: DIABETES MELLITUS
     Dosage: 30U, EACH EVENING
     Dates: start: 19610101, end: 19900601
  2. INSULIN [Suspect]
     Indication: DIABETES MELLITUS
     Dosage: 30U, EACH EVENING
     Dates: start: 19900101
  3. INSULIN [Suspect]
     Indication: DIABETES MELLITUS
     Dosage: 30 U, EACH MORNING
     Dates: start: 19610101, end: 19900601
  4. INSULIN [Suspect]
     Indication: DIABETES MELLITUS
     Dosage: 30 U, EACH MORNING
     Dates: start: 19900101
  5. HUMULIN N [Suspect]
     Indication: DIABETES MELLITUS
     Dates: start: 19900601, end: 19900101
  6. ZYRTEC  /GFR/ (CETIRIZINE HYDROCHLORIDE) [Concomitant]

REACTIONS (6)
  - BLOOD GLUCOSE INCREASED [None]
  - DRUG INEFFECTIVE [None]
  - EYE HAEMORRHAGE [None]
  - MENTAL DISORDER [None]
  - ROAD TRAFFIC ACCIDENT [None]
  - VASCULAR RUPTURE [None]
